FAERS Safety Report 4673320-3 (Version None)
Quarter: 2005Q2

REPORT INFORMATION
  Report Type: 
  Country: None (occurrence: None)
  Receive Date: 20050524
  Receipt Date: 20050524
  Transmission Date: 20051028
  Serious: Yes (Hospitalization)
  Sender: FDA-Public Use
  Company Number: None

PATIENT
  Age: 48 Year
  Sex: Male
  Weight: 93.2 kg

DRUGS (14)
  1. METHADONE [Suspect]
     Indication: BACK PAIN
     Dosage: 20MG  BID
  2. CLONAZEPAM [Suspect]
     Dosage: 0.5MG BID
  3. OXYCODONE HCL [Suspect]
     Dosage: 5 MG TID
  4. DORZOLAMIDE HCL [Concomitant]
  5. ALOH/MOGH/SIMTH XTRA STRENGTH [Concomitant]
  6. FLUOCINONIDE [Concomitant]
  7. ACETAMINOPHEN [Concomitant]
  8. ALBUTEROL [Concomitant]
  9. FLUNISOLIDE [Concomitant]
  10. OMEPRAZOLE [Concomitant]
  11. CHLORAL HYDRATE [Concomitant]
  12. DIPHENHYDRAMINE HCL [Concomitant]
  13. FLURBIPROFEN [Concomitant]
  14. OXYCODONE HCL [Concomitant]

REACTIONS (7)
  - ACCIDENTAL EXPOSURE [None]
  - BLOOD SODIUM DECREASED [None]
  - CONFUSIONAL STATE [None]
  - MENTAL STATUS CHANGES [None]
  - METASTASES TO CENTRAL NERVOUS SYSTEM [None]
  - OVERDOSE [None]
  - SPEECH DISORDER [None]
